FAERS Safety Report 24246732 (Version 1)
Quarter: 2024Q3

REPORT INFORMATION
  Report Type: Report from Study
  Country: US (occurrence: US)
  Receive Date: 20240826
  Receipt Date: 20240826
  Transmission Date: 20241016
  Serious: Yes (Hospitalization, Other)
  Sender: ABBVIE
  Company Number: US-ABBVIE-5890178

PATIENT
  Sex: Male

DRUGS (1)
  1. SKYRIZI [Suspect]
     Active Substance: RISANKIZUMAB-RZAA
     Indication: Crohn^s disease
     Route: 058

REACTIONS (5)
  - Nausea [Unknown]
  - Neoplasm malignant [Recovered/Resolved]
  - Recurrent cancer [Unknown]
  - Crohn^s disease [Unknown]
  - Appendicitis [Unknown]

NARRATIVE: CASE EVENT DATE: 20200101
